FAERS Safety Report 17786380 (Version 2)
Quarter: 2020Q2

REPORT INFORMATION
  Report Type: Spontaneous
  Country: CN (occurrence: CN)
  Receive Date: 20200514
  Receipt Date: 20200527
  Transmission Date: 20200714
  Serious: Yes (Other)
  Sender: FDA-Public Use
  Company Number: CN-ELI_LILLY_AND_COMPANY-CN202005000466

PATIENT
  Age: 13 Year

DRUGS (2)
  1. STRATTERA [Suspect]
     Active Substance: ATOMOXETINE HYDROCHLORIDE
     Indication: ATTENTION DEFICIT HYPERACTIVITY DISORDER
     Dosage: 40 MG, EACH EVENING
     Route: 048
     Dates: start: 20190319, end: 20200402
  2. STRATTERA [Suspect]
     Active Substance: ATOMOXETINE HYDROCHLORIDE
     Dosage: 50 MG, EACH EVENING
     Route: 048
     Dates: start: 20200403, end: 20200502

REACTIONS (3)
  - Discomfort [Unknown]
  - Suicidal ideation [Unknown]
  - Decreased appetite [Unknown]
